FAERS Safety Report 12329281 (Version 2)
Quarter: 2016Q2

REPORT INFORMATION
  Report Type: Spontaneous
  Country: US (occurrence: US)
  Receive Date: 20160503
  Receipt Date: 20160512
  Transmission Date: 20160815
  Serious: Yes (Life-Threatening, Hospitalization, Other)
  Sender: FDA-Public Use
  Company Number: US-SUNOVION-2016SUN001070

PATIENT
  Age: 49 Year
  Sex: Female
  Weight: 92.97 kg

DRUGS (4)
  1. LATUDA [Suspect]
     Active Substance: LURASIDONE HYDROCHLORIDE
     Indication: BIPOLAR DISORDER
     Dosage: UNK
     Route: 048
     Dates: start: 20140515
  2. METFORMIN [Interacting]
     Active Substance: METFORMIN HYDROCHLORIDE
     Dosage: 500 MG, UNK
     Route: 065
  3. LATUDA [Interacting]
     Active Substance: LURASIDONE HYDROCHLORIDE
     Dosage: 80 MG, UNK
     Route: 048
  4. XANAX [Suspect]
     Active Substance: ALPRAZOLAM
     Indication: ANXIETY
     Dosage: UNK
     Dates: start: 20130429

REACTIONS (10)
  - Fall [Unknown]
  - Upper limb fracture [Unknown]
  - Drug interaction [Unknown]
  - Seizure [Unknown]
  - Cerebrovascular accident [Unknown]
  - Facial bones fracture [Unknown]
  - Back injury [Unknown]
  - Weight increased [Not Recovered/Not Resolved]
  - Joint dislocation [Not Recovered/Not Resolved]
  - Coma [Recovered/Resolved]

NARRATIVE: CASE EVENT DATE: 201411
